FAERS Safety Report 8170154-2 (Version None)
Quarter: 2012Q1

REPORT INFORMATION
  Report Type: 
  Country: None (occurrence: None)
  Receive Date: 20120228
  Receipt Date: 20120221
  Transmission Date: 20120608
  Serious: Yes (Hospitalization)
  Sender: FDA-Public Use
  Company Number: PHEH2011US02557

PATIENT
  Sex: Female
  Weight: 70.295 kg

DRUGS (7)
  1. LUNESTA [Concomitant]
  2. DURAGESIC-100 [Concomitant]
     Indication: PAIN
  3. ZOLOFT [Concomitant]
     Indication: DEPRESSION
  4. OXYCODONE HCL [Concomitant]
  5. RED BLOOD CELLS, CONCENTRATED [Concomitant]
     Dosage: 2 U
  6. DESFERAL [Concomitant]
  7. EXJADE [Suspect]
     Indication: SERUM FERRITIN INCREASED
     Dosage: 500 MG, QD
     Route: 048
     Dates: start: 20110817, end: 20110822

REACTIONS (4)
  - OEDEMA [None]
  - HEADACHE [None]
  - VISUAL IMPAIRMENT [None]
  - ABDOMINAL PAIN [None]
